FAERS Safety Report 5377194-7 (Version None)
Quarter: 2007Q3

REPORT INFORMATION
  Report Type: 
  Country: None (occurrence: None)
  Receive Date: 20070703
  Receipt Date: 20070622
  Transmission Date: 20080115
  Serious: Yes (Other)
  Sender: FDA-Public Use
  Company Number: GB-ELI_LILLY_AND_COMPANY-GB200706005609

PATIENT
  Age: 60 Year
  Sex: Female

DRUGS (7)
  1. LANTUS [Concomitant]
     Indication: DIABETES MELLITUS
     Dosage: 8 U, EACH EVENING
  2. LEVOTHYROXINE SODIUM [Concomitant]
     Dosage: UNK, UNK
     Dates: start: 19900101
  3. PLAVIX [Concomitant]
     Dates: start: 20060101
  4. CRESTOR [Concomitant]
     Dates: start: 20060101
  5. HUMULIN R [Suspect]
     Indication: DIABETES MELLITUS
     Dosage: 2 U, EACH MORNING
  6. HUMULIN R [Suspect]
     Dosage: 2 U, DAILY (1/D)
  7. HUMALOG [Suspect]
     Indication: DIABETES MELLITUS
     Dosage: 4 U, EACH EVENING

REACTIONS (2)
  - DRUG INEFFECTIVE [None]
  - MYOCARDIAL INFARCTION [None]
